FAERS Safety Report 8208436-8 (Version None)
Quarter: 2012Q1

REPORT INFORMATION
  Report Type: 
  Country: None (occurrence: None)
  Receive Date: 20120314
  Receipt Date: 20120309
  Transmission Date: 20120608
  Serious: Yes (Life-Threatening, Hospitalization)
  Sender: FDA-Public Use
  Company Number: BE-CELGENEUS-013-21880-12030459

PATIENT
  Sex: Female
  Weight: 49 kg

DRUGS (6)
  1. DAUNORUBICIN HCL [Suspect]
     Indication: ACUTE MYELOID LEUKAEMIA
     Route: 041
     Dates: start: 20120113, end: 20120115
  2. CYTARABINE [Suspect]
     Indication: ACUTE MYELOID LEUKAEMIA
     Route: 041
     Dates: start: 20120113, end: 20120119
  3. CYTARABINE [Suspect]
  4. REVLIMID [Suspect]
  5. REVLIMID [Suspect]
     Indication: ACUTE MYELOID LEUKAEMIA
     Dosage: 15 MILLIGRAM
     Route: 048
     Dates: start: 20120113, end: 20120202
  6. DAUNORUBICIN HCL [Suspect]

REACTIONS (1)
  - PNEUMONIA [None]
